FAERS Safety Report 13941180 (Version 1)
Quarter: 2017Q3

REPORT INFORMATION
  Report Type: Spontaneous
  Country: FR (occurrence: FR)
  Receive Date: 20170906
  Receipt Date: 20170906
  Transmission Date: 20171127
  Serious: Yes (Other)
  Sender: FDA-Public Use
  Company Number: FR-TEIKOKU PHARMA USA-TPU2017-00542

PATIENT
  Age: 84 Year
  Sex: Male

DRUGS (4)
  1. LYRICA [Concomitant]
     Active Substance: PREGABALIN
  2. OXYNORMORO [Concomitant]
     Active Substance: OXYCODONE
  3. OXYCODONE [Concomitant]
     Active Substance: OXYCODONE
  4. VERSATIS [Suspect]
     Active Substance: LIDOCAINE
     Indication: PERIPHERAL SENSORY NEUROPATHY
     Route: 061
     Dates: start: 20170811, end: 20170811

REACTIONS (3)
  - Urinary incontinence [Recovered/Resolved]
  - Loss of consciousness [Recovered/Resolved]
  - Pyramidal tract syndrome [Recovered/Resolved]

NARRATIVE: CASE EVENT DATE: 20170811
